FAERS Safety Report 5780165-X (Version None)
Quarter: 2008Q2

REPORT INFORMATION
  Report Type: 
  Country: None (occurrence: None)
  Receive Date: 20080620
  Receipt Date: 20080610
  Transmission Date: 20081010
  Serious: Yes (Other)
  Sender: FDA-Public Use
  Company Number: JP-ASTRAZENECA-2008AP04726

PATIENT
  Age: 70 Year
  Sex: Male

DRUGS (3)
  1. TENORMIN [Suspect]
     Dosage: UNKNOWN DOSE
     Route: 048
  2. VASOLAN [Suspect]
     Dosage: DOSE UNKNOWN
     Route: 065
  3. BEPRICOR [Suspect]
     Dosage: DOSE UNKNOWN
     Route: 048

REACTIONS (3)
  - BLOOD PRESSURE DECREASED [None]
  - BRADYCARDIA [None]
  - SHOCK [None]
